FAERS Safety Report 25532829 (Version 1)
Quarter: 2025Q3

REPORT INFORMATION
  Report Type: Spontaneous
  Country: CN (occurrence: CN)
  Receive Date: 20250709
  Receipt Date: 20250709
  Transmission Date: 20251020
  Serious: Yes (Other)
  Sender: ALCON
  Company Number: CN-ALCON LABORATORIES-ALC2025CN003444

PATIENT
  Age: 76 Year
  Sex: Male

DRUGS (1)
  1. PROPARACAINE HYDROCHLORIDE [Suspect]
     Active Substance: PROPARACAINE HYDROCHLORIDE
     Indication: Anaesthesia eye
     Dates: start: 20250626, end: 20250626

REACTIONS (1)
  - Eye allergy [Recovering/Resolving]

NARRATIVE: CASE EVENT DATE: 20250626
